FAERS Safety Report 17730802 (Version 3)
Quarter: 2020Q4

REPORT INFORMATION
  Report Type: Spontaneous
  Country: DE (occurrence: DE)
  Receive Date: 20200430
  Receipt Date: 20201012
  Transmission Date: 20210113
  Serious: Yes (Other)
  Sender: FDA-Public Use
  Company Number: DE-MYLANLABS-2020M1042508

PATIENT
  Sex: Male

DRUGS (18)
  1. VALSARTAN. [Suspect]
     Active Substance: VALSARTAN
     Indication: HYPERTENSION
     Dosage: UNK
     Route: 048
     Dates: start: 20170713
  2. ALLOPURINOL. [Concomitant]
     Active Substance: ALLOPURINOL
     Dosage: 1 DOSAGE FORMS DAILY
  3. PANKREATIN [Concomitant]
     Active Substance: PANCRELIPASE
     Indication: PANCREATIC FAILURE
     Dosage: UNK
     Dates: start: 201709
  4. VALSARTAN. [Suspect]
     Active Substance: VALSARTAN
     Indication: HYPERTENSION
     Dosage: UNK
     Route: 048
     Dates: start: 20170713
  5. DULOXETIN 1A PHARMA [Concomitant]
     Active Substance: DULOXETINE HYDROCHLORIDE
     Dosage: UNK UNK, QD
     Dates: end: 201704
  6. ELIQUIS [Concomitant]
     Active Substance: APIXABAN
     Dosage: UNK
     Dates: end: 201706
  7. TAMSULOSIN [Concomitant]
     Active Substance: TAMSULOSIN
     Dosage: UNK UNK, QD
  8. CLOPIDOGREL AAA [Concomitant]
     Dosage: 75 MILLIGRAM DAILY
     Dates: start: 201708
  9. PANTOPRAZOL AL [Concomitant]
     Active Substance: PANTOPRAZOLE SODIUM
     Dosage: UNK
  10. VALSARTAN. [Suspect]
     Active Substance: VALSARTAN
     Indication: HYPERTENSION
     Dosage: UNK
     Dates: start: 20181214
  11. ASPIRIN. [Concomitant]
     Active Substance: ASPIRIN
     Dosage: UNK
     Dates: end: 201708
  12. VALSARTAN. [Suspect]
     Active Substance: VALSARTAN
     Indication: HYPERTENSION
     Dosage: UNK
     Dates: start: 20181214
  13. GABAPENTIN 1A PHARMA [Concomitant]
     Active Substance: GABAPENTIN
     Dosage: 600 MILLIGRAM, QD
  14. VALSARTAN 1A PHARMA PLUS [Suspect]
     Active Substance: HYDROCHLOROTHIAZIDE\VALSARTAN
     Indication: HYPERTENSION
     Dosage: 1 DF CONTAINS 160 MG VALSARTAN AND 12.5 MG HYDROCHLOROTHIAZIDE
     Dates: start: 20170214
  15. VALSARTAN HENNIG PLUS HCT [Suspect]
     Active Substance: HYDROCHLOROTHIAZIDE\VALSARTAN
     Indication: HYPERTENSION
     Dosage: 1 DF CONTAINS 160 MG VALSARTAN AND 12.5 MG HYDROCHLOROTHIAZIDE
     Dates: start: 20160913
  16. VALSARTAN DURA [Suspect]
     Active Substance: VALSARTAN
     Indication: HYPERTENSION
     Dosage: UNK
     Dates: start: 20180723
  17. FOSTER [Concomitant]
     Active Substance: BECLOMETHASONE\FORMOTEROL
     Dosage: UNK
  18. RANITIDIN [Concomitant]
     Active Substance: RANITIDINE HYDROCHLORIDE
     Dosage: 300 MILLIGRAM DAILY

REACTIONS (14)
  - Muscle spasms [Unknown]
  - Swollen tongue [Unknown]
  - Nausea [Unknown]
  - Rectal cancer [Unknown]
  - Swelling face [Unknown]
  - Diarrhoea [Unknown]
  - Product impurity [Unknown]
  - Headache [Unknown]
  - Asthenia [Unknown]
  - Abdominal pain [Unknown]
  - Urticaria [Unknown]
  - Fatigue [Unknown]
  - Cough [Unknown]
  - Vertigo [Unknown]
